FAERS Safety Report 7776997-9 (Version None)
Quarter: 2011Q3

REPORT INFORMATION
  Report Type: 
  Country: None (occurrence: None)
  Receive Date: 20110926
  Receipt Date: 20110926
  Transmission Date: 20111222
  Serious: Yes (Other)
  Sender: FDA-Public Use
  Company Number: None

PATIENT
  Age: 30 Year
  Sex: Female
  Weight: 43.091 kg

DRUGS (2)
  1. REMICADE [Concomitant]
     Dosage: 3 MG/KG
     Route: 041
  2. REMICADE [Suspect]
     Indication: JUVENILE ARTHRITIS
     Dosage: 3 MG/KG
     Route: 041

REACTIONS (8)
  - PURULENCE [None]
  - ARTHRALGIA [None]
  - BONE PAIN [None]
  - BACK PAIN [None]
  - PSORIASIS [None]
  - BLISTER [None]
  - PSORIATIC ARTHROPATHY [None]
  - SKIN EXFOLIATION [None]
